FAERS Safety Report 18178614 (Version 1)
Quarter: 2020Q3

REPORT INFORMATION
  Report Type: Spontaneous
  Country: US (occurrence: US)
  Receive Date: 20200820
  Receipt Date: 20200820
  Transmission Date: 20201103
  Serious: Yes (Hospitalization)
  Sender: FDA-Public Use
  Company Number: US-FRESENIUS MEDICAL CARE RENAL THERAPIES GROUP-FMC-2008-000962

PATIENT
  Age: 77 Year
  Sex: Male
  Weight: 84.1 kg

DRUGS (3)
  1. DELFLEX WITH DEXTROSE 2.5% LOW MAGNESIUM LOW CALCIUM [Suspect]
     Active Substance: CALCIUM CHLORIDE\DEXTROSE\MAGNESIUM CHLORIDE\SODIUM CHLORIDE\SODIUM LACTATE
     Indication: END STAGE RENAL DISEASE
     Dosage: FILL VOLUME 2000 ML, 5 EXCHANGES, LAST FILL 1000 ML, DAYTIME EXCHANGE 1000 ML, TOTAL VOLUME 12,000 M
     Route: 033
     Dates: start: 20180101
  2. DELFLEX WITH DEXTROSE 4.25% LOW MAGNESIUM LOW CALCIUM [Suspect]
     Active Substance: CALCIUM CHLORIDE\DEXTROSE\MAGNESIUM CHLORIDE\SODIUM CHLORIDE\SODIUM LACTATE
     Indication: END STAGE RENAL DISEASE
     Dosage: FILL VOLUME 2000 ML, 5 EXCHANGES, LAST FILL 1000 ML, DAYTIME EXCHANGE 1000 ML, TOTAL VOLUME 12,000 M
     Route: 033
     Dates: start: 20180101
  3. DELFLEX WITH DEXTROSE 1.5% LOW MAGNESIUM LOW CALCIUM [Suspect]
     Active Substance: CALCIUM CHLORIDE\DEXTROSE\MAGNESIUM CHLORIDE\SODIUM CHLORIDE\SODIUM LACTATE
     Indication: END STAGE RENAL DISEASE
     Dosage: FILL VOLUME 2000 ML, 5 EXCHANGES, LAST FILL 1000 ML, DAYTIME EXCHANGE 1000 ML, TOTAL VOLUME 12,000 M
     Route: 033
     Dates: start: 20180101

REACTIONS (1)
  - Chest pain [Recovered/Resolved]
